FAERS Safety Report 10650767 (Version 3)
Quarter: 2015Q1

REPORT INFORMATION
  Report Type: Spontaneous
  Country: JP (occurrence: JP)
  Receive Date: 20141215
  Receipt Date: 20150125
  Transmission Date: 20150720
  Serious: Yes (Death, Life-Threatening, Other)
  Sender: FDA-Public Use
  Company Number: JP-009507513-1412JPN004066

PATIENT
  Age: 66 Year
  Sex: Male
  Weight: 39 kg

DRUGS (7)
  1. CANCIDAS [Suspect]
     Active Substance: CASPOFUNGIN ACETATE
     Indication: ASPERGILLUS INFECTION
     Dosage: 70 MG, QD
     Route: 041
     Dates: start: 20140815, end: 20140815
  2. CANCIDAS [Suspect]
     Active Substance: CASPOFUNGIN ACETATE
     Indication: ASPERGILLUS INFECTION
     Dosage: 50 MG, QD
     Route: 041
     Dates: start: 20140816, end: 20141010
  3. CILASTATIN SODIUM (+) IMIPENEM [Concomitant]
     Indication: PNEUMONIA BACTERIAL
     Dosage: 1 G, BID
     Route: 051
     Dates: start: 20140925, end: 20141006
  4. VANCOMYCIN [Concomitant]
     Active Substance: VANCOMYCIN
     Indication: PNEUMONIA STAPHYLOCOCCAL
     Dosage: 1 G, BID
     Route: 051
     Dates: start: 20141007, end: 20141010
  5. ZOSYN [Concomitant]
     Active Substance: PIPERACILLIN SODIUM\TAZOBACTAM SODIUM
     Indication: PNEUMONIA
     Dosage: 4.5 MG, TID
     Route: 051
     Dates: start: 20140821, end: 20140925
  6. VENILON [Concomitant]
     Active Substance: HUMAN IMMUNOGLOBULIN G
     Indication: PNEUMONIA BACTERIAL
     Dosage: 2.5 G, QD
     Route: 051
     Dates: start: 20140924, end: 20140927
  7. MINOCYCLINE HYDROCHLORIDE. [Concomitant]
     Active Substance: MINOCYCLINE HYDROCHLORIDE
     Indication: PNEUMONIA BACTERIAL
     Dosage: 100 MG, BID
     Route: 051
     Dates: start: 20140828, end: 20141006

REACTIONS (2)
  - Respiratory failure [Fatal]
  - Pneumonia bacterial [Fatal]

NARRATIVE: CASE EVENT DATE: 20141010
